FAERS Safety Report 8583318-0 (Version None)
Quarter: 2012Q3

REPORT INFORMATION
  Report Type: 
  Country: None (occurrence: None)
  Receive Date: 20120809
  Receipt Date: 20120803
  Transmission Date: 20120928
  Serious: Yes (Hospitalization)
  Sender: FDA-Public Use
  Company Number: FR-GILEAD-2012-0053525

PATIENT
  Sex: Male

DRUGS (15)
  1. EPOPROSTENOL SODIUM [Suspect]
     Indication: PULMONARY ARTERIAL HYPERTENSION
     Dosage: 0.014 UNKNOWN, QD
     Route: 042
     Dates: start: 20111201, end: 20120412
  2. OXYGEN [Concomitant]
     Indication: PULMONARY ARTERIAL HYPERTENSION
     Dosage: 2 IU, QD
     Route: 055
     Dates: start: 20111101
  3. TADALAFIL [Concomitant]
     Dosage: UNK
  4. TRAMADOL                           /00599202/ [Concomitant]
     Indication: PAIN
     Dosage: 150 MG, BID
     Route: 048
     Dates: start: 20120413
  5. TRAMADOL                           /00599202/ [Concomitant]
     Dosage: 50 MG, BID
     Route: 048
     Dates: end: 20120413
  6. AMBRISENTAN [Suspect]
     Indication: PULMONARY ARTERIAL HYPERTENSION
     Dosage: 5 MG, QD
     Route: 048
     Dates: start: 20100211
  7. ILOPROST [Concomitant]
     Indication: PULMONARY ARTERIAL HYPERTENSION
     Dosage: 5 ?G, QID
     Route: 055
     Dates: start: 20120405
  8. FUROSEMIDE                         /00032602/ [Concomitant]
     Indication: PULMONARY ARTERIAL HYPERTENSION
     Dosage: 1 DF, QD
     Route: 048
  9. DIOSMECTAL [Concomitant]
     Indication: PROPHYLAXIS AGAINST DIARRHOEA
     Dosage: UNK UNK, QD
     Route: 048
  10. ACETAMINOPHEN [Concomitant]
     Indication: PAIN
     Dosage: 1000 MG, TID
     Route: 048
  11. TADALAFIL [Concomitant]
     Indication: PULMONARY ARTERIAL HYPERTENSION
     Dosage: 20 MG, BID
     Route: 048
     Dates: start: 20120405, end: 20120409
  12. POTASSIUM CHLORIDE [Concomitant]
     Indication: HYPOKALAEMIA
     Dosage: 600 MG, QD
     Route: 048
     Dates: end: 20120406
  13. FLUINDIONE [Concomitant]
     Indication: PULMONARY ARTERIAL HYPERTENSION
     Dosage: 1 DF, QD
     Route: 048
     Dates: start: 20041201
  14. SPIRONOLACTONE ALTIZIDE ARROW [Concomitant]
     Indication: PULMONARY ARTERIAL HYPERTENSION
     Dosage: 50 MG, QD
     Route: 048
  15. METOCLOPRAMIDE [Concomitant]
     Indication: PROPHYLAXIS OF NAUSEA AND VOMITING
     Dosage: 10 MG, UNK
     Route: 048
     Dates: end: 20120406

REACTIONS (2)
  - TOXIC SKIN ERUPTION [None]
  - STAPHYLOCOCCAL INFECTION [None]
